FAERS Safety Report 9377493 (Version 1)
Quarter: 2013Q3

REPORT INFORMATION
  Report Type: Spontaneous
  Country: CO (occurrence: CO)
  Receive Date: 20130701
  Receipt Date: 20130701
  Transmission Date: 20140515
  Serious: Yes (Other)
  Sender: FDA-Public Use
  Company Number: CO-PFIZER INC-2013194201

PATIENT
  Age: 72 Year
  Sex: Male

DRUGS (4)
  1. NORVAS [Suspect]
     Indication: HYPERTENSION
     Dosage: 5 MG, 1X/DAY
     Route: 048
     Dates: start: 1993
  2. AMLODIPINE BESILATE [Suspect]
     Route: 065
  3. ASPIRINA [Concomitant]
     Dosage: 100 MG, 1X/DAY
     Route: 048
     Dates: start: 2003
  4. DIOVANE [Concomitant]
     Dosage: 80 MG, 1X/DAY
     Route: 048
     Dates: start: 2003

REACTIONS (1)
  - Diabetes mellitus [Unknown]
